FAERS Safety Report 21412254 (Version 1)
Quarter: 2022Q4

REPORT INFORMATION
  Report Type: Spontaneous
  Country: US (occurrence: None)
  Receive Date: 20221004
  Receipt Date: 20221004
  Transmission Date: 20230113
  Serious: Yes (Hospitalization)
  Sender: FDA-Public Use
  Company Number: None

PATIENT
  Age: 66 Year
  Sex: Male

DRUGS (1)
  1. OPSUMIT [Suspect]
     Active Substance: MACITENTAN
     Indication: Pulmonary arterial hypertension
     Dosage: FREQUENCY : DAILY;?
     Route: 048
     Dates: start: 202208, end: 202209

REACTIONS (5)
  - Dyspnoea [None]
  - Peripheral swelling [None]
  - Asthenia [None]
  - Feeling cold [None]
  - Oropharyngeal pain [None]

NARRATIVE: CASE EVENT DATE: 20220901
